FAERS Safety Report 9347351 (Version 1)
Quarter: 2013Q2

REPORT INFORMATION
  Report Type: Spontaneous
  Country: JP (occurrence: JP)
  Receive Date: 20130613
  Receipt Date: 20130613
  Transmission Date: 20140414
  Serious: Yes (Hospitalization)
  Sender: FDA-Public Use
  Company Number: JP-US-EMD SERONO, INC.-7191677

PATIENT
  Age: 29 Year
  Sex: Female

DRUGS (1)
  1. GONAL-F RFF PEN [Suspect]
     Indication: PRODUCT USED FOR UNKNOWN INDICATION
     Dosage: 450 IU AND 900 IU
     Route: 058
     Dates: start: 201201, end: 201201

REACTIONS (1)
  - Ovarian hyperstimulation syndrome [Unknown]
